FAERS Safety Report 9199083 (Version 1)
Quarter: 2013Q1

REPORT INFORMATION
  Report Type: Spontaneous
  Country: US (occurrence: None)
  Receive Date: 20130325
  Receipt Date: 20130325
  Transmission Date: 20140127
  Serious: No
  Sender: FDA-Public Use
  Company Number: 2013US-004615

PATIENT
  Age: 90 Year
  Sex: Male
  Weight: 57 kg

DRUGS (16)
  1. OMONTYS (PEGINESATIDE) SOLUTION FOR INJECTION [Suspect]
     Indication: NEPHROGENIC ANAEMIA
     Route: 042
     Dates: start: 20130212, end: 20130212
  2. NORVASC (AMLODIPINE BESILATE) [Concomitant]
  3. DIOVAN (VALSARTAN) [Concomitant]
  4. MINOXIDIL (MINOXIDIL) [Concomitant]
  5. VITAMIN C [Concomitant]
  6. CALCIUM (CALCIUM) [Concomitant]
  7. FISH OIL (FISH OIL) [Concomitant]
  8. ASPIRIN (ACETYLSALICYLIC ACID) [Concomitant]
  9. RENAGEL (SEVELAMER) [Concomitant]
  10. NAMENDA (MEMANTINE HYDROCHLORIDE) [Concomitant]
  11. ARICEPT (DONEPEZIL HYDROCHLORIDE) [Concomitant]
  12. HECTOROL (DOXERCALCIFEROL) [Concomitant]
  13. CLONIDINE (CLONIDINE) [Concomitant]
  14. FERRLECIT (FERRIC SODIUM GLUCONATE COMPLEX) [Concomitant]
  15. FLOMAX (TAMSULOSIN HYDROCHLORIDE) [Concomitant]
  16. AVODART (DUTASTERIDE) [Concomitant]

REACTIONS (1)
  - Blood pressure fluctuation [None]
